FAERS Safety Report 25222000 (Version 3)
Quarter: 2025Q2

REPORT INFORMATION
  Report Type: Spontaneous
  Country: CA (occurrence: CA)
  Receive Date: 20250421
  Receipt Date: 20250530
  Transmission Date: 20250717
  Serious: Yes (Hospitalization, Other)
  Sender: PFIZER
  Company Number: CA-PFIZER INC-202500081065

PATIENT
  Age: 88 Year
  Sex: Male

DRUGS (1)
  1. VYNDAQEL [Suspect]
     Active Substance: TAFAMIDIS MEGLUMINE
     Indication: Cardiac amyloidosis
     Dosage: 80 MG, 1X/DAY
     Route: 048
     Dates: start: 20230515

REACTIONS (9)
  - Dyspnoea [Unknown]
  - Peripheral swelling [Unknown]
  - Cardiac failure chronic [Not Recovered/Not Resolved]
  - Vision blurred [Unknown]
  - Fatigue [Unknown]
  - Dizziness [Unknown]
  - Decreased appetite [Unknown]
  - Cough [Unknown]
  - Fluid retention [Unknown]

NARRATIVE: CASE EVENT DATE: 20250527
